FAERS Safety Report 21036798 (Version 1)
Quarter: 2022Q3

REPORT INFORMATION
  Report Type: Spontaneous
  Country: FR (occurrence: None)
  Receive Date: 20220702
  Receipt Date: 20220702
  Transmission Date: 20221027
  Serious: Yes (Hospitalization, Other)
  Sender: FDA-Public Use
  Company Number: FR-MICRO LABS LIMITED-ML2022-03132

PATIENT
  Age: 62 Year
  Sex: Male
  Weight: 112 kg

DRUGS (10)
  1. APIXABAN [Suspect]
     Active Substance: APIXABAN
     Indication: Atrial fibrillation
     Dosage: 23 X 10 MG (230 MG)
  2. ATORVASTATIN [Suspect]
     Active Substance: ATORVASTATIN
  3. ATORVASTATIN [Suspect]
     Active Substance: ATORVASTATIN
  4. ATORVASTATIN [Suspect]
     Active Substance: ATORVASTATIN
  5. CLOMIPRAMINE [Suspect]
     Active Substance: CLOMIPRAMINE
  6. AMLODIPINE [Suspect]
     Active Substance: AMLODIPINE BESYLATE
  7. BISOPROLOL [Suspect]
     Active Substance: BISOPROLOL
  8. HYDROCHLOROTHIAZIDE [Suspect]
     Active Substance: HYDROCHLOROTHIAZIDE
  9. ACETAMINOPHEN [Suspect]
     Active Substance: ACETAMINOPHEN
  10. POTASSIUM [Suspect]
     Active Substance: POTASSIUM

REACTIONS (6)
  - Suicide attempt [Unknown]
  - Toxicity to various agents [Unknown]
  - Shock [Unknown]
  - Circulatory collapse [Unknown]
  - Drug interaction [Unknown]
  - Overdose [Unknown]
